FAERS Safety Report 5105679-7 (Version None)
Quarter: 2006Q3

REPORT INFORMATION
  Report Type: 
  Country: None (occurrence: None)
  Receive Date: 20060915
  Receipt Date: 20060904
  Transmission Date: 20061208
  Serious: Yes (Other)
  Sender: FDA-Public Use
  Company Number: 2006AP04192

PATIENT
  Age: 14767 Day
  Sex: Female
  Weight: 53 kg

DRUGS (1)
  1. CRESTOR [Suspect]
     Indication: HYPERCHOLESTEROLAEMIA
     Dosage: 2.5 MG TAKEN EVERY OTHER DAY
     Route: 048
     Dates: start: 20051116

REACTIONS (3)
  - CONDITION AGGRAVATED [None]
  - GAMMA-GLUTAMYLTRANSFERASE INCREASED [None]
  - NEPHROTIC SYNDROME [None]
